FAERS Safety Report 23042761 (Version 1)
Quarter: 2023Q4

REPORT INFORMATION
  Report Type: Report from Study
  Country: BR (occurrence: BR)
  Receive Date: 20231009
  Receipt Date: 20231009
  Transmission Date: 20240110
  Serious: Yes (Hospitalization)
  Sender: FDA-Public Use
  Company Number: BR-002147023-NVSC2023BR214657

PATIENT
  Sex: Female

DRUGS (1)
  1. ENTRESTO [Suspect]
     Active Substance: SACUBITRIL\VALSARTAN
     Indication: Product used for unknown indication
     Dosage: 0.5 DOSAGE FORM, BID (50 MG)
     Route: 048
     Dates: start: 20230701

REACTIONS (3)
  - Type 2 diabetes mellitus [Unknown]
  - Chronic obstructive pulmonary disease [Unknown]
  - Wrong technique in product usage process [Unknown]
